FAERS Safety Report 11178306 (Version 1)
Quarter: 2015Q2

REPORT INFORMATION
  Report Type: Spontaneous
  Country: DE (occurrence: DE)
  Receive Date: 20150610
  Receipt Date: 20150610
  Transmission Date: 20150821
  Serious: Yes (Other)
  Sender: FDA-Public Use
  Company Number: DE-ELI_LILLY_AND_COMPANY-DE201504005160

PATIENT
  Sex: Male

DRUGS (2)
  1. ORTOTON                            /00047901/ [Concomitant]
     Indication: INTERVERTEBRAL DISC PROTRUSION
     Dosage: 2 DF, TID
     Dates: start: 20150105
  2. CIALIS [Suspect]
     Active Substance: TADALAFIL
     Indication: ERECTILE DYSFUNCTION
     Dosage: 10 MG, SINGLE
     Route: 048
     Dates: start: 20150110

REACTIONS (2)
  - Asthma [Unknown]
  - Drug ineffective [Recovered/Resolved]

NARRATIVE: CASE EVENT DATE: 20150110
